FAERS Safety Report 15886137 (Version 1)
Quarter: 2019Q1

REPORT INFORMATION
  Report Type: Report from Study
  Country: ES (occurrence: ES)
  Receive Date: 20190129
  Receipt Date: 20190129
  Transmission Date: 20190417
  Serious: Yes (Hospitalization)
  Sender: FDA-Public Use
  Company Number: ES-PFIZER INC-2018517835

PATIENT
  Age: 67 Year
  Sex: Female
  Weight: 65 kg

DRUGS (8)
  1. PREGABALIN. [Concomitant]
     Active Substance: PREGABALIN
     Indication: PAIN
     Route: 048
  2. AAS [Concomitant]
     Active Substance: ASPIRIN
     Indication: SARCOMA
     Dosage: UNK
     Route: 048
     Dates: start: 20161118
  3. AAS [Concomitant]
     Active Substance: ASPIRIN
     Indication: PROPHYLAXIS
  4. OXYCODONE [Concomitant]
     Active Substance: OXYCODONE
     Indication: PAIN
     Route: 048
  5. PAROXETINE. [Concomitant]
     Active Substance: PAROXETINE
     Indication: DEPRESSION
     Dosage: UNK
     Route: 048
     Dates: start: 20130917
  6. SUNITINIB MALATE. [Suspect]
     Active Substance: SUNITINIB MALATE
     Indication: BONE SARCOMA
     Dosage: 37.5 MG, DAILY
     Route: 048
     Dates: start: 20181115, end: 20181205
  7. OMEPRAZOL [Concomitant]
     Active Substance: OMEPRAZOLE
     Indication: PROPHYLAXIS
     Dosage: UNK
     Route: 048
  8. BMS-936558 [Suspect]
     Active Substance: NIVOLUMAB
     Indication: BONE SARCOMA
     Dosage: 3.0 MG/KG, EVERY 3 WEEKS
     Route: 042
     Dates: start: 20181128, end: 20181128

REACTIONS (1)
  - Autoimmune hepatitis [Recovered/Resolved]

NARRATIVE: CASE EVENT DATE: 20181205
